FAERS Safety Report 8808086 (Version 7)
Quarter: 2012Q4

REPORT INFORMATION
  Report Type: Report from Study
  Country: GR (occurrence: GR)
  Receive Date: 20120926
  Receipt Date: 20121203
  Transmission Date: 20130627
  Serious: Yes (Death, Hospitalization)
  Sender: FDA-Public Use
  Company Number: GR-AMGEN-GRCCT2012060579

PATIENT
  Age: 75 Year
  Sex: Male
  Weight: 58 kg

DRUGS (12)
  1. PANITUMUMAB [Suspect]
     Indication: COLORECTAL CANCER METASTATIC
     Dosage: 520 mg, q3wk
     Route: 042
     Dates: start: 20120718, end: 20120903
  2. ELOXATIN [Concomitant]
     Indication: COLORECTAL CANCER METASTATIC
     Dosage: 210 mg, q3wk
     Route: 042
     Dates: start: 20120718, end: 20120903
  3. XELODA [Concomitant]
     Indication: COLORECTAL CANCER METASTATIC
     Dosage: 3 g, qd
     Route: 048
     Dates: start: 20120718, end: 20120906
  4. DILATREND [Concomitant]
     Dosage: 25 mg, UNK
     Route: 048
  5. ACCUPRON [Concomitant]
     Indication: HYPERTENSION
     Dosage: 20 mg, UNK
     Route: 048
     Dates: start: 2007, end: 20120913
  6. INSPRA [Concomitant]
     Indication: CARDIAC FAILURE
     Dosage: 50 mg, qd
     Route: 048
     Dates: start: 2007, end: 20120913
  7. INEGY [Concomitant]
     Indication: HYPERCHOLESTEROLAEMIA
     Dosage: UNK UNK, qd
     Route: 048
     Dates: start: 2007, end: 20120913
  8. LASIX [Concomitant]
     Indication: HYPERTENSION
     Dosage: 40 mg, qd
     Route: 048
     Dates: start: 2007, end: 20120906
  9. LASIX [Concomitant]
     Indication: CARDIAC FAILURE
  10. ISCOVER [Concomitant]
     Indication: ATRIAL FIBRILLATION
     Dosage: 50 mg, qd
     Route: 048
     Dates: start: 2007, end: 20120913
  11. LANOXIN [Concomitant]
     Indication: CARDIAC FAILURE
     Dosage: UNK UNK, qd
     Route: 048
     Dates: start: 2007
  12. LANOXIN [Concomitant]
     Indication: ATRIAL FIBRILLATION

REACTIONS (3)
  - Cardiac arrest [Fatal]
  - Infection [Recovered/Resolved]
  - Diarrhoea [Recovered/Resolved]
